FAERS Safety Report 12738620 (Version 3)
Quarter: 2016Q4

REPORT INFORMATION
  Report Type: Report from Study
  Country: US (occurrence: US)
  Receive Date: 20160913
  Receipt Date: 20161104
  Transmission Date: 20170207
  Serious: Yes (Other)
  Sender: FDA-Public Use
  Company Number: US-SA-2016SA155727

PATIENT
  Age: 58 Year
  Sex: Female

DRUGS (2)
  1. LEMTRADA [Suspect]
     Active Substance: ALEMTUZUMAB
     Indication: MULTIPLE SCLEROSIS
     Route: 041
     Dates: start: 20160822, end: 20160826
  2. CAMBIA [Concomitant]
     Active Substance: DICLOFENAC POTASSIUM

REACTIONS (10)
  - Peripheral swelling [Recovering/Resolving]
  - Haemorrhage [Recovering/Resolving]
  - Wheezing [Recovering/Resolving]
  - Nausea [Unknown]
  - Back pain [Recovering/Resolving]
  - Blood pressure abnormal [Unknown]
  - Haemorrhagic diathesis [Not Recovered/Not Resolved]
  - Immune system disorder [Unknown]
  - Arthropod bite [Not Recovered/Not Resolved]
  - Headache [Recovering/Resolving]

NARRATIVE: CASE EVENT DATE: 2016
